FAERS Safety Report 14022000 (Version 1)
Quarter: 2017Q3

REPORT INFORMATION
  Report Type: Spontaneous
  Country: US (occurrence: US)
  Receive Date: 20170928
  Receipt Date: 20170928
  Transmission Date: 20171128
  Serious: Yes (Death, Other)
  Sender: FDA-Public Use
  Company Number: US-PFIZER INC-2006125725

PATIENT
  Age: 79 Year
  Sex: Male

DRUGS (3)
  1. BEXTRA [Suspect]
     Active Substance: VALDECOXIB
     Dosage: UNK
     Route: 048
  2. CELEBREX [Suspect]
     Active Substance: CELECOXIB
     Dosage: UNK
     Route: 048
  3. VIOXX [Suspect]
     Active Substance: ROFECOXIB
     Dosage: UNK
     Route: 048
     Dates: start: 20030101, end: 20040603

REACTIONS (3)
  - Cerebral infarction [Fatal]
  - Haemorrhagic stroke [Fatal]
  - Pleural effusion [Fatal]

NARRATIVE: CASE EVENT DATE: 20040523
